FAERS Safety Report 5408169-7 (Version None)
Quarter: 2007Q3

REPORT INFORMATION
  Report Type: 
  Country: None (occurrence: None)
  Receive Date: 20070808
  Receipt Date: 20070802
  Transmission Date: 20080115
  Serious: Yes (Other)
  Sender: FDA-Public Use
  Company Number: PHEH2007US10709

PATIENT
  Sex: Male

DRUGS (2)
  1. LOTREL [Suspect]
     Dosage: 10/40 MG, UNK
     Route: 048
  2. LOTREL [Suspect]
     Dosage: 5/20 MG, UNK
     Route: 048

REACTIONS (2)
  - BLOOD GLUCOSE INCREASED [None]
  - BLOOD PRESSURE DECREASED [None]
